FAERS Safety Report 7478238-9 (Version None)
Quarter: 2011Q2

REPORT INFORMATION
  Report Type: 
  Country: None (occurrence: None)
  Receive Date: 20110513
  Receipt Date: 20110509
  Transmission Date: 20111010
  Serious: Yes (Hospitalization)
  Sender: FDA-Public Use
  Company Number: PHHO2011DE06915

PATIENT
  Sex: Female
  Weight: 73 kg

DRUGS (4)
  1. CITALOPRAM HYDROBROMIDE [Concomitant]
     Indication: ANXIETY DISORDER
  2. MIRTAZAPINE [Concomitant]
     Indication: SLEEP DISORDER
  3. LAFAMME [Concomitant]
  4. FTY [Suspect]
     Indication: MULTIPLE SCLEROSIS
     Dosage: 0.5 MG, QD
     Route: 048
     Dates: start: 20110217

REACTIONS (1)
  - SUICIDE ATTEMPT [None]
